FAERS Safety Report 8021784-X (Version None)
Quarter: 2012Q1

REPORT INFORMATION
  Report Type: 
  Country: None (occurrence: None)
  Receive Date: 20120104
  Receipt Date: 20111231
  Transmission Date: 20120608
  Serious: Yes (Death, Other)
  Sender: FDA-Public Use
  Company Number: PHHY2011US113863

PATIENT

DRUGS (9)
  1. BASILIXIMAB [Suspect]
     Indication: SMALL INTESTINE TRANSPLANT
  2. FOSCARNET [Concomitant]
  3. PIPERACILLIN [Concomitant]
  4. TAZOBACTAM [Concomitant]
  5. STEROIDS NOS [Concomitant]
     Indication: SMALL INTESTINE TRANSPLANT
  6. GANCICLOVIR [Concomitant]
     Indication: ANTIVIRAL PROPHYLAXIS
     Dosage: FOR TWO WEEK
     Route: 042
  7. ACYCLOVIR [Concomitant]
     Indication: ANTIVIRAL PROPHYLAXIS
  8. TACROLIMUS [Concomitant]
     Indication: SMALL INTESTINE TRANSPLANT
  9. FLUCONAZOLE [Concomitant]

REACTIONS (3)
  - DEATH [None]
  - CYTOMEGALOVIRUS GASTROINTESTINAL INFECTION [None]
  - CYTOMEGALOVIRUS VIRAEMIA [None]
